FAERS Safety Report 9948883 (Version 1)
Quarter: 2014Q1

REPORT INFORMATION
  Report Type: Spontaneous
  Country: BR (occurrence: BR)
  Receive Date: 20140304
  Receipt Date: 20140304
  Transmission Date: 20141002
  Serious: Yes (Other)
  Sender: FDA-Public Use
  Company Number: BR-BRISTOL-MYERS SQUIBB COMPANY-20357372

PATIENT
  Sex: 0

DRUGS (1)
  1. ERBITUX [Suspect]

REACTIONS (3)
  - Dyspnoea [Unknown]
  - Hypotension [Unknown]
  - Rash [Unknown]
